FAERS Safety Report 5713882-8 (Version None)
Quarter: 2008Q2

REPORT INFORMATION
  Report Type: 
  Country: None (occurrence: None)
  Receive Date: 20080421
  Receipt Date: 20080403
  Transmission Date: 20081010
  Serious: Yes (Other)
  Sender: FDA-Public Use
  Company Number: 2008EU000191

PATIENT
  Age: 58 Year
  Sex: Male

DRUGS (6)
  1. PROGRAF [Suspect]
     Indication: PANCREAS TRANSPLANT
     Dosage: 5 MG, UID/QD, ORAL
     Route: 048
     Dates: start: 20070723
  2. PROGRAF [Suspect]
     Indication: RENAL TRANSPLANT
     Dosage: 5 MG, UID/QD, ORAL
     Route: 048
     Dates: start: 20070723
  3. CORTANCYL (PREDNISONE) [Concomitant]
  4. PRAVASTATIN [Concomitant]
  5. SECTRAL [Concomitant]
  6. KARDEGIC (ACETYLSALICYLATE LYSINE) [Concomitant]

REACTIONS (4)
  - OPTIC ATROPHY [None]
  - OPTIC NEURITIS [None]
  - TUNNEL VISION [None]
  - VISUAL ACUITY REDUCED [None]
